FAERS Safety Report 22201765 (Version 1)
Quarter: 2023Q2

REPORT INFORMATION
  Report Type: Spontaneous
  Country: IT (occurrence: IT)
  Receive Date: 20230412
  Receipt Date: 20230412
  Transmission Date: 20230722
  Serious: Yes (Other)
  Sender: FDA-Public Use
  Company Number: None

PATIENT
  Age: 24 Year
  Sex: Male
  Weight: 55 kg

DRUGS (1)
  1. HUMALOG [Suspect]
     Active Substance: INSULIN LISPRO
     Indication: Type 1 diabetes mellitus
     Dosage: 30 U, DAILY (3 MEALS)
     Route: 058
     Dates: start: 202108, end: 202203

REACTIONS (7)
  - Confusional state [Recovering/Resolving]
  - Visual impairment [Recovering/Resolving]
  - Neurological symptom [Recovering/Resolving]
  - Disorientation [Recovering/Resolving]
  - Feeling cold [Recovering/Resolving]
  - Balance disorder [Recovering/Resolving]
  - Tachycardia [Recovering/Resolving]

NARRATIVE: CASE EVENT DATE: 20210801
